FAERS Safety Report 7900530-1 (Version None)
Quarter: 2011Q4

REPORT INFORMATION
  Report Type: 
  Country: None (occurrence: None)
  Receive Date: 20111108
  Receipt Date: 20111028
  Transmission Date: 20120403
  Serious: Yes (Life-Threatening, Hospitalization)
  Sender: FDA-Public Use
  Company Number: FR-BRISTOL-MYERS SQUIBB COMPANY-16213944

PATIENT
  Age: 71 Year
  Sex: Female

DRUGS (9)
  1. ATACAND [Suspect]
     Indication: HYPERTENSION
     Dosage: FORMU: 16MG TABS
     Route: 048
     Dates: end: 20110721
  2. RABEPRAZOLE SODIUM [Concomitant]
     Dosage: TABS
  3. PREVISCAN [Concomitant]
     Dosage: TABS
  4. LASIX [Concomitant]
  5. ALDACTONE [Suspect]
     Indication: CARDIAC FAILURE
     Dosage: FORM: 25MG TABS
     Route: 048
     Dates: end: 20110721
  6. GLUCOPHAGE [Suspect]
     Indication: TYPE 2 DIABETES MELLITUS
     Route: 048
     Dates: end: 20110721
  7. SECTRAL [Suspect]
     Indication: HYPERTENSION
     Dosage: FORM: 200MG TABS
     Route: 048
     Dates: end: 20110721
  8. CALCIUM CARBONATE [Concomitant]
     Dosage: TABS
  9. CORDARONE [Concomitant]

REACTIONS (6)
  - HYPERKALAEMIA [None]
  - RENAL FAILURE ACUTE [None]
  - ELECTROCARDIOGRAM QRS COMPLEX PROLONGED [None]
  - LACTIC ACIDOSIS [None]
  - CONFUSIONAL STATE [None]
  - DEHYDRATION [None]
